FAERS Safety Report 6495415-4 (Version None)
Quarter: 2009Q4

REPORT INFORMATION
  Report Type: 
  Country: None (occurrence: None)
  Receive Date: 20091214
  Receipt Date: 20090613
  Transmission Date: 20100525
  Serious: No
  Sender: FDA-Public Use
  Company Number: US-BRISTOL-MYERS SQUIBB COMPANY-14668503

PATIENT
  Sex: Female

DRUGS (3)
  1. ABILIFY [Suspect]
     Indication: DEPRESSION
     Dosage: INITIALLY 5MG,THEN 10MG TAKEN.
  2. EFFEXOR [Suspect]
     Indication: DEPRESSION
  3. WELLBUTRIN [Suspect]
     Indication: DEPRESSION

REACTIONS (1)
  - WEIGHT INCREASED [None]
